FAERS Safety Report 9511012 (Version 2)
Quarter: 2013Q3

REPORT INFORMATION
  Report Type: Spontaneous
  Country: US (occurrence: None)
  Receive Date: 20130905
  Receipt Date: 20130927
  Transmission Date: 20140515
  Serious: Yes (Other)
  Sender: FDA-Public Use
  Company Number: 1868611

PATIENT
  Age: 27 Year
  Sex: Female
  Weight: 64.55 kg

DRUGS (6)
  1. MARCAINE SPINAL [Suspect]
     Indication: SPINAL ANAESTHESIA
     Dosage: UKNOWN, X2, UNKNOWN, EPIDURAL
     Dates: start: 20130717, end: 20130717
  2. LIDOCAINE HCL [Suspect]
     Indication: SPINAL ANAESTHESIA
     Dosage: UKNOWN, X2, UNKNOWN, EPIDURAL
     Dates: start: 20130717, end: 20130717
  3. EPINEPHRINE [Suspect]
     Indication: SPINAL ANAESTHESIA
     Dates: start: 20130717, end: 20130717
  4. PRENATAL VITAMINS [Concomitant]
  5. ZOFRAN [Concomitant]
  6. FOLIC ACID [Concomitant]

REACTIONS (2)
  - Neck pain [None]
  - Hypoaesthesia [None]
